FAERS Safety Report 11115388 (Version 1)
Quarter: 2015Q2

REPORT INFORMATION
  Report Type: Spontaneous
  Country: None (occurrence: None)
  Receive Date: 20150514
  Receipt Date: 20150514
  Transmission Date: 20150821
  Serious: Yes (Hospitalization)
  Sender: FDA-Public Use
  Company Number: None

PATIENT
  Age: 81 Year
  Sex: Female
  Weight: 37.8 kg

DRUGS (2)
  1. TICAGRELOR 90MG [Suspect]
     Active Substance: TICAGRELOR
     Indication: ACUTE MYOCARDIAL INFARCTION
     Route: 048
     Dates: start: 20140830, end: 20150507
  2. ASPIRIN. [Concomitant]
     Active Substance: ASPIRIN

REACTIONS (3)
  - Spinal compression fracture [None]
  - Haemorrhagic anaemia [None]
  - Dieulafoy^s vascular malformation [None]

NARRATIVE: CASE EVENT DATE: 20150507
